FAERS Safety Report 9371546 (Version 3)
Quarter: 2013Q3

REPORT INFORMATION
  Report Type: Spontaneous
  Country: US (occurrence: US)
  Receive Date: 20130627
  Receipt Date: 20130829
  Transmission Date: 20140515
  Serious: Yes (Hospitalization, Other)
  Sender: FDA-Public Use
  Company Number: US-ASTELLAS-2013US006628

PATIENT
  Age: 11 Year
  Sex: Female

DRUGS (4)
  1. PROGRAF [Suspect]
     Indication: LIVER TRANSPLANT
     Dosage: 2 MG, QMWF
     Route: 048
     Dates: start: 20120818
  2. PROGRAF [Suspect]
     Indication: LIVER DISORDER
  3. NEXIUM                             /01479302/ [Concomitant]
     Indication: PRODUCT USED FOR UNKNOWN INDICATION
     Dosage: 40 MG, BID
     Route: 048
  4. BACTRIM [Concomitant]
     Indication: PRODUCT USED FOR UNKNOWN INDICATION
     Dosage: 80 MG, 3XWEEKLY, QMWF
     Route: 048

REACTIONS (16)
  - Inappropriate schedule of drug administration [Unknown]
  - Off label use [Unknown]
  - Portal hypertension [Unknown]
  - Graft thrombosis [Unknown]
  - Portal vein occlusion [Unknown]
  - Gastric disorder [Unknown]
  - Shunt thrombosis [Unknown]
  - Pulmonary embolism [Unknown]
  - Muscle haemorrhage [Unknown]
  - Shunt occlusion [Unknown]
  - Gastrointestinal haemorrhage [Unknown]
  - Pleural effusion [Recovering/Resolving]
  - Transplant rejection [Unknown]
  - Atelectasis [Recovering/Resolving]
  - Gastritis [Unknown]
  - Gastrointestinal haemorrhage [Recovered/Resolved]
